FAERS Safety Report 24437294 (Version 1)
Quarter: 2024Q4

REPORT INFORMATION
  Report Type: Spontaneous
  Country: US (occurrence: None)
  Receive Date: 20241011
  Receipt Date: 20241011
  Transmission Date: 20250115
  Serious: Yes (Hospitalization)
  Sender: Public
  Company Number: None

PATIENT
  Sex: Female

DRUGS (1)
  1. KESIMPTA [Suspect]
     Active Substance: OFATUMUMAB
     Indication: Multiple sclerosis
     Dosage: OTHER QUANTITY : 20 MG (ONE PEN) ;?OTHER FREQUENCY : EVERY 30 DAYS;?
     Route: 058
     Dates: start: 20230425

REACTIONS (4)
  - Surgery [None]
  - Therapy interrupted [None]
  - Visual impairment [None]
  - Multiple sclerosis relapse [None]
